FAERS Safety Report 5723598-X (Version None)
Quarter: 2008Q2

REPORT INFORMATION
  Report Type: 
  Country: None (occurrence: None)
  Receive Date: 20080430
  Receipt Date: 20080423
  Transmission Date: 20081010
  Serious: Yes (Hospitalization)
  Sender: FDA-Public Use
  Company Number: BR-ASTRAZENECA-2008UW07601

PATIENT
  Age: 80 Year
  Sex: Male
  Weight: 63 kg

DRUGS (8)
  1. ZOLADEX [Suspect]
     Indication: PROSTATE CANCER RECURRENT
     Route: 058
     Dates: start: 20080331
  2. DOXAZOSIN MESYLATE [Concomitant]
     Indication: POLLAKIURIA
     Route: 048
     Dates: start: 20070101
  3. PROPATYLNITRATE [Concomitant]
     Route: 048
     Dates: start: 20061201
  4. CILOSTAZOLE [Concomitant]
     Route: 048
     Dates: start: 20061201
  5. SOMALGIN CARDIO [Concomitant]
     Route: 048
     Dates: start: 20061201
  6. NORIPURUM [Concomitant]
     Indication: ANAEMIA
     Route: 048
     Dates: start: 20070101
  7. PAPAVERINE [Concomitant]
     Route: 048
     Dates: start: 20070101
  8. TORLOS H [Concomitant]
     Dosage: 50/12.5 MG

REACTIONS (10)
  - BLOOD CREATININE DECREASED [None]
  - BLOOD UREA DECREASED [None]
  - DECREASED APPETITE [None]
  - DIZZINESS [None]
  - LABYRINTHITIS [None]
  - NAUSEA [None]
  - POLLAKIURIA [None]
  - PROSTATIC SPECIFIC ANTIGEN INCREASED [None]
  - RENAL DISORDER [None]
  - URINE OUTPUT DECREASED [None]
